FAERS Safety Report 22026677 (Version 1)
Quarter: 2023Q1

REPORT INFORMATION
  Report Type: Spontaneous
  Country: US (occurrence: None)
  Receive Date: 20230223
  Receipt Date: 20230223
  Transmission Date: 20230418
  Serious: No
  Sender: FDA-Public Use
  Company Number: US-ROCHE-3182676

PATIENT
  Sex: Male

DRUGS (1)
  1. XOLAIR [Suspect]
     Active Substance: OMALIZUMAB
     Indication: Chronic spontaneous urticaria
     Route: 058
     Dates: start: 201912

REACTIONS (7)
  - Reading disorder [Not Recovered/Not Resolved]
  - Myopia [Unknown]
  - Colour vision tests abnormal [Unknown]
  - Hypoacusis [Unknown]
  - Hypoaesthesia [Unknown]
  - Chronic obstructive pulmonary disease [Unknown]
  - Dry eye [Unknown]
